FAERS Safety Report 8186146 (Version 2)
Quarter: 2013Q4

REPORT INFORMATION
  Report Type: Spontaneous
  Country: CA (occurrence: CA)
  Receive Date: 20111018
  Receipt Date: 20131209
  Transmission Date: 20140711
  Serious: Yes (Hospitalization)
  Sender: FDA-Public Use
  Company Number: CA-AMGEN-CANSP2011052789

PATIENT
  Age: 30 Year
  Sex: Male

DRUGS (7)
  1. NPLATE [Suspect]
     Indication: IMMUNE THROMBOCYTOPENIC PURPURA
     Dosage: 250 MUG, QWK
     Route: 065
     Dates: start: 2009
  2. ASPIRIN [Concomitant]
  3. LIPITOR [Concomitant]
  4. VITAMIN C                          /00008001/ [Concomitant]
  5. VITAMIN D                          /00107901/ [Concomitant]
  6. FOLIC ACID [Concomitant]
  7. PLAVIX [Concomitant]

REACTIONS (8)
  - Pyrexia [Not Recovered/Not Resolved]
  - Platelet count decreased [Unknown]
  - Gastroenteritis salmonella [Not Recovered/Not Resolved]
  - Mouth haemorrhage [Not Recovered/Not Resolved]
  - Haemoglobin decreased [Not Recovered/Not Resolved]
  - Thrombosis [Unknown]
  - Myocardial infarction [Unknown]
  - Headache [Unknown]
